FAERS Safety Report 17654619 (Version 2)
Quarter: 2020Q2

REPORT INFORMATION
  Report Type: Report from Study
  Country: CO (occurrence: CO)
  Receive Date: 20200410
  Receipt Date: 20200429
  Transmission Date: 20200713
  Serious: Yes (Hospitalization, Other)
  Sender: FDA-Public Use
  Company Number: CO-ASTELLAS-2020US012660

PATIENT
  Age: 70 Year
  Sex: Female
  Weight: 62 kg

DRUGS (4)
  1. TACROLIMUS. [Suspect]
     Active Substance: TACROLIMUS
     Indication: RENAL TRANSPLANT
     Dosage: 7 MG, ONCE DAILY (1 CAPSULE OF 5MG + 2 CAPSULE OF 1MG)
     Route: 048
     Dates: start: 20150813, end: 201909
  2. PREDNISOLONE. [Concomitant]
     Active Substance: PREDNISOLONE
     Indication: RENAL TRANSPLANT
     Route: 048
  3. MYCOPHENOLATE [Concomitant]
     Active Substance: MYCOPHENOLIC ACID
     Indication: RENAL TRANSPLANT
     Route: 048
  4. TACROLIMUS. [Suspect]
     Active Substance: TACROLIMUS
     Dosage: 3 MG, ONCE DAILY (1 CAPSULE OF 3 MG)
     Route: 048
     Dates: start: 201909

REACTIONS (8)
  - Cough [Recovering/Resolving]
  - Urinary tract infection [Unknown]
  - Haemoglobin decreased [Recovered/Resolved]
  - Urine output decreased [Recovered/Resolved]
  - Chromaturia [Recovered/Resolved]
  - Influenza [Recovered/Resolved]
  - Fluid retention [Unknown]
  - Platelet count decreased [Recovered/Resolved]

NARRATIVE: CASE EVENT DATE: 202003
